FAERS Safety Report 6184615-9 (Version None)
Quarter: 2009Q2

REPORT INFORMATION
  Report Type: 
  Country: None (occurrence: None)
  Receive Date: 20090508
  Receipt Date: 20090505
  Transmission Date: 20091009
  Serious: Yes (Death, Other)
  Sender: FDA-Public Use
  Company Number: PHHY2009GB17233

PATIENT

DRUGS (6)
  1. IMATINIB MESYLATE [Suspect]
     Dosage: 400 MG, QD
  2. PREDNISOLONE [Concomitant]
  3. DASATINIB [Concomitant]
  4. CYCLOSPORINE [Concomitant]
  5. METHOTREXATE [Concomitant]
  6. CYCLOPHOSPHAMIDE [Concomitant]

REACTIONS (4)
  - ACUTE MYELOID LEUKAEMIA [None]
  - GRAFT VERSUS HOST DISEASE [None]
  - PHOTOPHERESIS [None]
  - STEM CELL TRANSPLANT [None]
